FAERS Safety Report 19981426 (Version 1)
Quarter: 2021Q4

REPORT INFORMATION
  Report Type: Spontaneous
  Country: CA (occurrence: CA)
  Receive Date: 20211022
  Receipt Date: 20211022
  Transmission Date: 20220303
  Serious: Yes (Other)
  Sender: FDA-Public Use
  Company Number: CA-GPPHARMP-2021000092

PATIENT
  Age: 58 Year
  Sex: Male

DRUGS (11)
  1. LEUPROLIDE ACETATE [Suspect]
     Active Substance: LEUPROLIDE ACETATE
     Indication: Metastases to bone
     Route: 065
  2. BICALUTAMIDE [Suspect]
     Active Substance: BICALUTAMIDE
  3. DARUNAVIR [Suspect]
     Active Substance: DARUNAVIR
     Route: 065
  4. DOLUTEGRAVIR [Suspect]
     Active Substance: DOLUTEGRAVIR
     Route: 065
  5. ENZALUTAMIDE [Suspect]
     Active Substance: ENZALUTAMIDE
  6. ETRAVIRINE [Suspect]
     Active Substance: ETRAVIRINE
     Route: 065
  7. RALTEGRAVIR [Suspect]
     Active Substance: RALTEGRAVIR
     Route: 065
  8. RITONAVIR [Suspect]
     Active Substance: RITONAVIR
     Route: 065
  9. EMTRICITABINE [Concomitant]
     Active Substance: EMTRICITABINE
     Route: 065
  10. tenofovir + alafenamide fumarate [Concomitant]
     Route: 065
  11. RITONAVIR [Suspect]
     Active Substance: RITONAVIR

REACTIONS (5)
  - Drug ineffective [Unknown]
  - Drug interaction [Unknown]
  - Drug level decreased [Unknown]
  - Product use in unapproved indication [Unknown]
  - Prostate cancer [Unknown]
